FAERS Safety Report 11972893 (Version 4)
Quarter: 2016Q4

REPORT INFORMATION
  Report Type: Spontaneous
  Country: JP (occurrence: JP)
  Receive Date: 20160128
  Receipt Date: 20161214
  Transmission Date: 20170206
  Serious: Yes (Hospitalization)
  Sender: FDA-Public Use
  Company Number: JP-PFIZER INC-2016012914

PATIENT
  Age: 65 Year
  Sex: Male

DRUGS (2)
  1. DUROTEP [Concomitant]
     Active Substance: FENTANYL
     Dosage: UNK
  2. TORISEL [Suspect]
     Active Substance: TEMSIROLIMUS
     Indication: RENAL CANCER
     Dosage: 12.5 MG, DAILY
     Route: 041
     Dates: start: 20140523, end: 20151225

REACTIONS (3)
  - Somnolence [Recovering/Resolving]
  - Neoplasm progression [Unknown]
  - Skin ulcer [Unknown]

NARRATIVE: CASE EVENT DATE: 20160108
